FAERS Safety Report 18059899 (Version 1)
Quarter: 2020Q3

REPORT INFORMATION
  Report Type: Spontaneous
  Country: US (occurrence: US)
  Receive Date: 20200723
  Receipt Date: 20200723
  Transmission Date: 20201103
  Serious: Yes (Life-Threatening, Other)
  Sender: FDA-Public Use
  Company Number: None

PATIENT
  Age: 17 Year
  Sex: Female
  Weight: 59.6 kg

DRUGS (3)
  1. PROZAC 20MG TABLETS [Concomitant]
  2. STIMATE [Suspect]
     Active Substance: DESMOPRESSIN ACETATE
     Indication: VON WILLEBRAND^S DISEASE
     Dates: start: 20200714, end: 20200714
  3. CRYSELLE BIRTH CONTROL [Concomitant]

REACTIONS (8)
  - Product measured potency issue [None]
  - Muscle tightness [None]
  - Hyponatraemia [None]
  - Angiopathy [None]
  - Discomfort [None]
  - Product formulation issue [None]
  - Recalled product [None]
  - Neck pain [None]

NARRATIVE: CASE EVENT DATE: 20200714
